FAERS Safety Report 23068484 (Version 2)
Quarter: 2024Q2

REPORT INFORMATION
  Report Type: Report from Study
  Country: CA (occurrence: CA)
  Receive Date: 20231016
  Receipt Date: 20240625
  Transmission Date: 20240716
  Serious: Yes (Other)
  Sender: FDA-Public Use
  Company Number: CA-002147023-NVSC2023CA073873

PATIENT
  Age: 24 Year
  Sex: Female

DRUGS (1)
  1. HYRIMOZ [Suspect]
     Active Substance: ADALIMUMAB-ADAZ
     Indication: Hidradenitis
     Dosage: 40 MG, QW
     Route: 058
     Dates: start: 20221209

REACTIONS (13)
  - Accident [Unknown]
  - Wound necrosis [Unknown]
  - Joint range of motion decreased [Unknown]
  - Wound [Unknown]
  - Discharge [Unknown]
  - Oedema peripheral [Unknown]
  - Menstruation irregular [Unknown]
  - Intermenstrual bleeding [Unknown]
  - Swelling [Unknown]
  - Abscess [Unknown]
  - Axillary pain [Recovered/Resolved]
  - Skin lesion [Recovering/Resolving]
  - Stress [Recovered/Resolved]

NARRATIVE: CASE EVENT DATE: 20230816
